FAERS Safety Report 14178915 (Version 1)
Quarter: 2017Q4

REPORT INFORMATION
  Report Type: Spontaneous
  Country: US (occurrence: US)
  Receive Date: 20171110
  Receipt Date: 20171110
  Transmission Date: 20180321
  Serious: Yes (Life-Threatening)
  Sender: FDA-Public Use
  Company Number: US-PFIZER INC-2015003440

PATIENT
  Sex: Female

DRUGS (3)
  1. ANTILYMPHOCYTE IMMUNOGLOBULINS [Suspect]
     Active Substance: THYMOCYTE IMMUNE GLOBULIN NOS
     Dosage: UNK
  2. CYCLOSPORINE. [Concomitant]
     Active Substance: CYCLOSPORINE
     Dosage: 125 MG, 2X/DAY
  3. SOLIRIS [Concomitant]
     Active Substance: ECULIZUMAB
     Dosage: UNK
     Route: 042

REACTIONS (2)
  - Asthenia [Unknown]
  - Myocardial infarction [Unknown]

NARRATIVE: CASE EVENT DATE: 2014
